FAERS Safety Report 25015324 (Version 1)
Quarter: 2025Q1

REPORT INFORMATION
  Report Type: Spontaneous
  Country: BR (occurrence: BR)
  Receive Date: 20250226
  Receipt Date: 20250226
  Transmission Date: 20250409
  Serious: Yes (Hospitalization)
  Sender: JOHNSON AND JOHNSON
  Company Number: BR-JNJFOC-20250259136

PATIENT
  Age: 60 Year
  Sex: Male
  Weight: 83 kg

DRUGS (6)
  1. IMBRUVICA [Suspect]
     Active Substance: IBRUTINIB
     Indication: Bone marrow transplant
     Route: 048
     Dates: start: 202304
  2. FUROSEMIDE [Concomitant]
     Active Substance: FUROSEMIDE
  3. CARVEDILOL [Concomitant]
     Active Substance: CARVEDILOL
  4. AZITHROMYCIN [Concomitant]
     Active Substance: AZITHROMYCIN
  5. PURAN [Concomitant]
     Active Substance: LEVOTHYROXINE SODIUM
  6. BECLOMETHASONE\FORMOTEROL [Concomitant]
     Active Substance: BECLOMETHASONE\FORMOTEROL

REACTIONS (2)
  - Illness [Not Recovered/Not Resolved]
  - Off label use [Unknown]

NARRATIVE: CASE EVENT DATE: 20250208
